FAERS Safety Report 11004687 (Version 1)
Quarter: 2015Q2

REPORT INFORMATION
  Report Type: Spontaneous
  Country: US (occurrence: None)
  Receive Date: 20150408
  Receipt Date: 20150408
  Transmission Date: 20150821
  Serious: Yes (Hospitalization)
  Sender: FDA-Public Use
  Company Number: None

PATIENT
  Sex: Male

DRUGS (1)
  1. TRIMIX [Suspect]
     Active Substance: ALPROSTADIL\PAPAVERINE\PHENTOLAMINE
     Dates: start: 20150313, end: 20150313

REACTIONS (6)
  - Fatigue [None]
  - Pyrexia [None]
  - Chills [None]
  - Staphylococcal infection [None]
  - Product contamination microbial [None]
  - Asthenia [None]

NARRATIVE: CASE EVENT DATE: 20150315
